FAERS Safety Report 4631833-4 (Version None)
Quarter: 2005Q2

REPORT INFORMATION
  Report Type: 
  Country: None (occurrence: None)
  Receive Date: 20050411
  Receipt Date: 20050330
  Transmission Date: 20051028
  Serious: Yes (Hospitalization, Disabling, Other)
  Sender: FDA-Public Use
  Company Number: US-JNJFOC-20030903694

PATIENT
  Sex: Female
  Weight: 69.4 kg

DRUGS (9)
  1. REMICADE [Suspect]
     Route: 042
  2. REMICADE [Suspect]
     Route: 042
  3. REMICADE [Suspect]
     Route: 042
  4. REMICADE [Suspect]
     Indication: CROHN'S DISEASE
     Route: 042
  5. PENTASA [Concomitant]
  6. CELEXA [Concomitant]
  7. HYDROCHLOROTHIAZIDE [Concomitant]
  8. PROTONIX [Concomitant]
  9. PURENTHAL [Concomitant]

REACTIONS (68)
  - ABASIA [None]
  - ABDOMINAL DISTENSION [None]
  - ABDOMINAL PAIN [None]
  - ABSCESS [None]
  - ACUTE SINUSITIS [None]
  - ANHEDONIA [None]
  - ANXIETY [None]
  - ARTHRALGIA [None]
  - BACK PAIN [None]
  - BLISTER [None]
  - BRONCHITIS [None]
  - CAECITIS [None]
  - CELLULITIS STAPHYLOCOCCAL [None]
  - CHEST PAIN [None]
  - COUGH [None]
  - CROHN'S DISEASE [None]
  - CRYING [None]
  - DEPRESSION [None]
  - DRUG INEFFECTIVE [None]
  - DRUG TOLERANCE DECREASED [None]
  - DUODENAL ULCER [None]
  - DYSPHAGIA [None]
  - DYSPHONIA [None]
  - EAR PAIN [None]
  - ECCHYMOSIS [None]
  - ERYTHEMA [None]
  - EXOSTOSIS [None]
  - FALL [None]
  - FATIGUE [None]
  - FOLLICULITIS [None]
  - GASTRIC OUTLET OBSTRUCTION [None]
  - GASTRITIS [None]
  - GASTRITIS EROSIVE [None]
  - HEADACHE [None]
  - HELICOBACTER INFECTION [None]
  - HOSPITALISATION [None]
  - HYPOAESTHESIA [None]
  - INJURY [None]
  - IRON DEFICIENCY ANAEMIA [None]
  - JOINT SPRAIN [None]
  - JOINT STIFFNESS [None]
  - LABYRINTHITIS [None]
  - MOOD ALTERED [None]
  - MUCOSAL EROSION [None]
  - MUCOUS MEMBRANE DISORDER [None]
  - MUSCULOSKELETAL STIFFNESS [None]
  - NAUSEA [None]
  - NEUROPATHY [None]
  - ODYNOPHAGIA [None]
  - OSTEOARTHRITIS [None]
  - OTITIS MEDIA [None]
  - PAIN [None]
  - PAIN IN EXTREMITY [None]
  - PANIC ATTACK [None]
  - PHARYNGITIS [None]
  - POLYMYALGIA [None]
  - POSTNASAL DRIP [None]
  - PUBIC PAIN [None]
  - PYREXIA [None]
  - RASH PUSTULAR [None]
  - SINUS CONGESTION [None]
  - SINUS DISORDER [None]
  - SLE ARTHRITIS [None]
  - SWELLING [None]
  - TINNITUS [None]
  - VERTIGO [None]
  - VOMITING [None]
  - WOUND INFECTION STAPHYLOCOCCAL [None]
